FAERS Safety Report 9837103 (Version 1)
Quarter: 2013Q4

REPORT INFORMATION
  Report Type: Spontaneous
  Country: US (occurrence: None)
  Receive Date: 20131205
  Receipt Date: 20131205
  Transmission Date: 20140711
  Serious: Yes (Other)
  Sender: FDA-Public Use
  Company Number: 163-POMAL-13083375

PATIENT
  Age: 84 Year
  Sex: Male

DRUGS (7)
  1. POMALYST (POMALIDOMIDE) (4 MILLIGRAM, CAPSULES) [Suspect]
     Indication: PLASMA CELL MYELOMA
     Dosage: 4 MG, 21 IN 28 D, PO
     Route: 048
     Dates: start: 20130718, end: 20130720
  2. AMLODIPINE BESYLATE (AMLODIPINE BESILATE) (UNKNOWN)? [Concomitant]
  3. FRAGMIN (HEPARIN-FRACTION, SODIUM SALT) (UNKNOWN) [Concomitant]
  4. ALLEGRA (FEXOFENADINE HYDROCHLORIDE) (UNKNOWN) [Concomitant]
  5. NEXIUM DR (ESOMEPRAZOLE) (UNKNOWN) [Concomitant]
  6. WARFARIN SODIUM (WARFARIN SODIUM) (UNKNOWN) [Concomitant]
  7. FLOMAX (TAMSULOSIN) (UNKNOWN) [Concomitant]

REACTIONS (4)
  - Hypersensitivity [None]
  - Rash [None]
  - Eye swelling [None]
  - Flushing [None]
